FAERS Safety Report 9348920 (Version 1)
Quarter: 2013Q2

REPORT INFORMATION
  Report Type: Spontaneous
  Country: US (occurrence: US)
  Receive Date: 20130614
  Receipt Date: 20130614
  Transmission Date: 20140414
  Serious: Yes (Hospitalization)
  Sender: FDA-Public Use
  Company Number: US-COVIDIEN/TYCO HEALTHCARE/MALLINCKRODT-T201302811

PATIENT
  Age: 51 Year
  Sex: Female
  Weight: 54.42 kg

DRUGS (8)
  1. METHADONE [Suspect]
     Indication: PAIN
     Dosage: 10 MG, BID
  2. GABAPENTIN [Suspect]
     Indication: PRODUCT USED FOR UNKNOWN INDICATION
     Dosage: UNK
  3. LYRICA [Concomitant]
     Indication: INTERVERTEBRAL DISC PROTRUSION
     Dosage: 200 MG, BID
     Dates: start: 2009
  4. LYRICA [Concomitant]
     Indication: NERVE INJURY
  5. FENTANYL [Concomitant]
     Indication: PRODUCT USED FOR UNKNOWN INDICATION
     Dosage: UNK
     Route: 062
  6. TEMAZEPAM [Concomitant]
     Indication: DEPRESSION
     Dosage: 60 MG, QD, AT NIGHT
  7. BACLOFEN [Concomitant]
     Indication: PRODUCT USED FOR UNKNOWN INDICATION
     Dosage: 20 MG, TID
  8. CLONAZEPAM [Concomitant]
     Indication: ANXIETY
     Dosage: 2 MG, BID

REACTIONS (1)
  - Coma [Recovered/Resolved]
